FAERS Safety Report 8743287 (Version 2)
Quarter: 2013Q4

REPORT INFORMATION
  Report Type: Spontaneous
  Country: IL (occurrence: IL)
  Receive Date: 20120824
  Receipt Date: 20131108
  Transmission Date: 20140711
  Serious: Yes (Other)
  Sender: FDA-Public Use
  Company Number: IL-009507513-1207ISR008613

PATIENT
  Sex: Female

DRUGS (1)
  1. NUVARING [Suspect]
     Indication: CONTRACEPTION
     Dosage: UNK
     Dates: start: 201206, end: 201207

REACTIONS (3)
  - Abortion induced [Unknown]
  - Unintended pregnancy [Recovered/Resolved]
  - Inappropriate schedule of drug administration [Unknown]
